FAERS Safety Report 13438070 (Version 1)
Quarter: 2017Q2

REPORT INFORMATION
  Report Type: Spontaneous
  Country: US (occurrence: US)
  Receive Date: 20170413
  Receipt Date: 20170413
  Transmission Date: 20170830
  Serious: Yes (Other)
  Sender: FDA-Public Use
  Company Number: US-PFIZER INC-2016286926

PATIENT
  Age: 2 Month
  Sex: Female
  Weight: 4 kg

DRUGS (1)
  1. CHLOROPROCAINE HYDROCHLORIDE. [Suspect]
     Active Substance: CHLOROPROCAINE HYDROCHLORIDE
     Indication: EPIDURAL ANAESTHESIA
     Dosage: 4 ML, UNK
     Route: 042

REACTIONS (3)
  - Wrong drug administered [Unknown]
  - Cardiotoxicity [Recovered/Resolved]
  - Bradycardia [Recovered/Resolved]
